FAERS Safety Report 22646616 (Version 1)
Quarter: 2023Q2

REPORT INFORMATION
  Report Type: Spontaneous
  Country: CN (occurrence: None)
  Receive Date: 20230627
  Receipt Date: 20230627
  Transmission Date: 20230721
  Serious: Yes (Hospitalization)
  Sender: FDA-Public Use
  Company Number: 2023A134050

PATIENT
  Sex: Male

DRUGS (1)
  1. BREZTRI [Suspect]
     Active Substance: BUDESONIDE\FORMOTEROL\GLYCOPYRROLATE
     Dosage: 160UG/7.2UG/4.8UG/PRESS
     Route: 055

REACTIONS (3)
  - Condition aggravated [Unknown]
  - Device ineffective [Unknown]
  - Device delivery system issue [Unknown]
